FAERS Safety Report 12923903 (Version 1)
Quarter: 2016Q4

REPORT INFORMATION
  Report Type: Spontaneous
  Country: US (occurrence: US)
  Receive Date: 20161109
  Receipt Date: 20161109
  Transmission Date: 20170207
  Serious: No
  Sender: FDA-Public Use
  Company Number: None

PATIENT
  Age: 62 Year
  Sex: Female
  Weight: 59.02 kg

DRUGS (2)
  1. NATURE-THROID [Suspect]
     Active Substance: THYROID, PORCINE
     Indication: HYPOTHYROIDISM
     Dosage: 16.25MG X 4 = 65 MG 4 PILLS 1 X DAILY A.M. 1X  DAILY AM GLASS OF WATER BY MOUTH.
     Route: 048
     Dates: start: 20140901, end: 20161102
  2. METFORMIN HCL [Concomitant]
     Active Substance: METFORMIN HYDROCHLORIDE

REACTIONS (7)
  - Wound [None]
  - Mood swings [None]
  - Urine output decreased [None]
  - Increased appetite [None]
  - Alopecia [None]
  - Temperature intolerance [None]
  - Dry skin [None]

NARRATIVE: CASE EVENT DATE: 20161028
